FAERS Safety Report 22198259 (Version 3)
Quarter: 2024Q2

REPORT INFORMATION
  Report Type: Other
  Country: US (occurrence: US)
  Receive Date: 20230411
  Receipt Date: 20240426
  Transmission Date: 20240715
  Serious: No
  Sender: FDA-Public Use
  Company Number: US-Kiniksa Pharmaceuticals Ltd.-2023KPU000187

PATIENT
  Age: 56 Year
  Sex: Female

DRUGS (1)
  1. ARCALYST [Suspect]
     Active Substance: RILONACEPT
     Indication: Pericarditis
     Route: 058
     Dates: start: 20220323, end: 202306

REACTIONS (7)
  - Drug ineffective [Unknown]
  - Endocrine ophthalmopathy [Unknown]
  - Peripheral swelling [Unknown]
  - Back pain [Unknown]
  - Blindness [Unknown]
  - Keratitis [Unknown]
  - Product solubility abnormal [Unknown]

NARRATIVE: CASE EVENT DATE: 20220801
